FAERS Safety Report 6506731-1 (Version None)
Quarter: 2009Q4

REPORT INFORMATION
  Report Type: 
  Country: None (occurrence: None)
  Receive Date: 20091216
  Receipt Date: 20091203
  Transmission Date: 20100525
  Serious: Yes (Other)
  Sender: FDA-Public Use
  Company Number: 230267M09USA

PATIENT
  Age: 40 Year
  Sex: Female
  Weight: 82 kg

DRUGS (4)
  1. REBIF [Suspect]
     Indication: MULTIPLE SCLEROSIS
     Dosage: 44 MCG, 3 IN 1 WEEKS, SUBCUTANEOUS
     Route: 058
     Dates: start: 20081113, end: 20081207
  2. NAPRELAN [Concomitant]
  3. ULTRAM [Concomitant]
  4. KLONOPIN [Concomitant]

REACTIONS (6)
  - CRYING [None]
  - DEPRESSION [None]
  - IRRITABILITY [None]
  - PARTNER STRESS [None]
  - SKIN LACERATION [None]
  - SUICIDE ATTEMPT [None]
